FAERS Safety Report 6746422-5 (Version None)
Quarter: 2010Q2

REPORT INFORMATION
  Report Type: 
  Country: None (occurrence: None)
  Receive Date: 20100528
  Receipt Date: 20100527
  Transmission Date: 20101027
  Serious: Yes (Death)
  Sender: FDA-Public Use
  Company Number: GB-ROXANE LABORATORIES, INC.-2010-RO-00649RO

PATIENT
  Age: 101 Year
  Sex: Male

DRUGS (4)
  1. CYCLOPHOSPHAMIDE [Suspect]
     Indication: MUCOCUTANEOUS ULCERATION
  2. CYCLOPHOSPHAMIDE [Suspect]
     Indication: EPSTEIN-BARR VIRUS INFECTION
  3. R-CHOP [Suspect]
     Indication: MUCOCUTANEOUS ULCERATION
  4. R-CHOP [Suspect]
     Indication: EPSTEIN-BARR VIRUS INFECTION

REACTIONS (1)
  - DEATH [None]
